FAERS Safety Report 6921392-5 (Version None)
Quarter: 2010Q3

REPORT INFORMATION
  Report Type: 
  Country: None (occurrence: None)
  Receive Date: 20100812
  Receipt Date: 20100729
  Transmission Date: 20110219
  Serious: Yes (Other)
  Sender: FDA-Public Use
  Company Number: PHHY2010AU32793

PATIENT
  Sex: Female

DRUGS (11)
  1. CLOZARIL [Suspect]
     Indication: SCHIZOAFFECTIVE DISORDER
     Dosage: 550 MG, QD
     Route: 048
  2. ESOMEPRAZOLE MAGNESIUM [Concomitant]
     Dosage: 40 MG, BID
     Route: 048
  3. ASPIRIN [Concomitant]
     Dosage: 100 MG, QD
     Route: 048
  4. ATORVASTATIN [Concomitant]
     Dosage: 40 MG, UNK, NIGHT
     Route: 048
  5. TIOTROPIUM [Concomitant]
  6. GAVISCON [Concomitant]
     Dosage: 10 ML, UNK
  7. SERETIDE [Concomitant]
     Dosage: UNK
  8. ALBUTEROL SULFATE AUTOHALER [Concomitant]
     Dosage: UNK
  9. VITAMIN D3 [Concomitant]
     Dosage: 1000 IU, UNK
  10. CALTRATE [Concomitant]
     Dosage: 600 MG, UNK
  11. COLOXYL WITH SENNA [Concomitant]
     Dosage: UNK

REACTIONS (2)
  - DIASTOLIC DYSFUNCTION [None]
  - LEFT VENTRICULAR HYPERTROPHY [None]
